FAERS Safety Report 16712750 (Version 2)
Quarter: 2025Q4

REPORT INFORMATION
  Report Type: Spontaneous
  Country: EU (occurrence: EU)
  Receive Date: 20190817
  Receipt Date: 20251104
  Transmission Date: 20260118
  Serious: Yes (Other)
  Sender: BRISTOL-MYERS SQUIBB COMPANY
  Company Number: EU-BRISTOL-MYERS SQUIBB COMPANY-BMS-2019-077865

PATIENT
  Age: 77 Year
  Sex: Male
  Weight: 64.5 kg

DRUGS (1)
  1. OPDIVO [Suspect]
     Active Substance: NIVOLUMAB
     Indication: Renal cancer
     Dosage: 3 MILLIGRAM/KILOGRAM
     Route: 042
     Dates: start: 20181115, end: 20190726

REACTIONS (3)
  - Arthralgia [Not Recovered/Not Resolved]
  - Autoimmune haemolytic anaemia [Recovering/Resolving]
  - Myalgia [Not Recovered/Not Resolved]

NARRATIVE: CASE EVENT DATE: 20190401
